FAERS Safety Report 9585410 (Version 1)
Quarter: 2013Q4

REPORT INFORMATION
  Report Type: Spontaneous
  Country: US (occurrence: US)
  Receive Date: 20131002
  Receipt Date: 20131002
  Transmission Date: 20140711
  Serious: No
  Sender: FDA-Public Use
  Company Number: US-AMGEN-USASP2013063825

PATIENT
  Age: 41 Year
  Sex: Male

DRUGS (1)
  1. ENBREL [Suspect]
     Indication: PSORIASIS
     Dosage: 50 MG,EVERY 3 TO 4 DAYS
     Route: 065
     Dates: start: 20100101, end: 2010

REACTIONS (1)
  - Pain in extremity [Not Recovered/Not Resolved]
